FAERS Safety Report 6801998-4 (Version None)
Quarter: 2010Q2

REPORT INFORMATION
  Report Type: 
  Country: None (occurrence: None)
  Receive Date: 20100629
  Receipt Date: 20100615
  Transmission Date: 20101027
  Serious: Yes (Other)
  Sender: FDA-Public Use
  Company Number: PHEH2007US11263

PATIENT
  Sex: Female
  Weight: 54.422 kg

DRUGS (30)
  1. AREDIA [Suspect]
     Dosage: 90 MG, UNK
     Route: 042
     Dates: start: 19961101, end: 20050101
  2. ZOMETA [Suspect]
     Dosage: 4 MG, QMO
     Route: 042
     Dates: start: 20030601, end: 20051101
  3. FOSAMAX [Suspect]
     Dates: start: 19950101
  4. PROZAC [Concomitant]
  5. TAMOXIFEN [Concomitant]
  6. NEURONTIN [Concomitant]
  7. LORTAB [Concomitant]
  8. CALCIUM CARBONATE [Concomitant]
  9. VITAMIN B [Concomitant]
  10. ASPIRIN [Concomitant]
  11. AMBIEN [Concomitant]
  12. IMITREX ^CERENEX^ [Concomitant]
  13. DIFLUCAN [Concomitant]
  14. ACETAMINOPHEN AND HYDROCODONE BITARTRATE [Concomitant]
  15. ERYTHROMYCIN [Concomitant]
  16. PENICILLIN ^GRUNENTHAL^ [Concomitant]
     Dosage: UNK
  17. SULFAMETHOXAZOLE [Concomitant]
     Dosage: UNK
  18. GABAPENTIN [Concomitant]
     Dosage: UNK
  19. REQUIP [Concomitant]
     Dosage: UNK
  20. PAMIDRONATE DISODIUM [Concomitant]
     Dosage: UNK
  21. FLUOXETINE [Concomitant]
  22. CYTOXAN [Concomitant]
  23. ADRIAMYCIN PFS [Concomitant]
  24. VERSED [Concomitant]
  25. BACITRACIN [Concomitant]
  26. ANCEF [Concomitant]
  27. VALIUM [Concomitant]
  28. FLUMAZENIL [Concomitant]
  29. ISOVUE-128 [Concomitant]
  30. BOLUS [Concomitant]

REACTIONS (33)
  - ACTINIC KERATOSIS [None]
  - APPENDICECTOMY [None]
  - APPENDICITIS [None]
  - BONE DISORDER [None]
  - BREAST RECONSTRUCTION [None]
  - CARPAL TUNNEL SYNDROME [None]
  - CENTRAL VENOUS CATHETER REMOVAL [None]
  - CENTRAL VENOUS CATHETERISATION [None]
  - DENTAL CARIES [None]
  - DUODENAL STENOSIS [None]
  - EMOTIONAL DISTRESS [None]
  - ENDODONTIC PROCEDURE [None]
  - EROSIVE OESOPHAGITIS [None]
  - GASTRIC ULCER [None]
  - GASTRITIS [None]
  - HERNIA [None]
  - HIATUS HERNIA [None]
  - IMPAIRED HEALING [None]
  - INFECTION [None]
  - INJURY [None]
  - LOOSE TOOTH [None]
  - METASTASES TO BONE [None]
  - OSTEONECROSIS OF JAW [None]
  - PAIN [None]
  - SPINAL OSTEOARTHRITIS [None]
  - SQUAMOUS CELL CARCINOMA OF SKIN [None]
  - SURGERY [None]
  - SWELLING [None]
  - TOOTH ABSCESS [None]
  - TOOTH DISORDER [None]
  - TOOTH EXTRACTION [None]
  - TOOTHACHE [None]
  - WOUND SECRETION [None]
